FAERS Safety Report 8471540-3 (Version None)
Quarter: 2012Q2

REPORT INFORMATION
  Report Type: 
  Country: None (occurrence: None)
  Receive Date: 20120323
  Receipt Date: 20111014
  Transmission Date: 20120825
  Serious: Yes (Hospitalization)
  Sender: FDA-Public Use
  Company Number: 163-21880-11100407

PATIENT
  Age: 61 Year
  Sex: Male
  Weight: 77.1115 kg

DRUGS (11)
  1. ACETAMINOPHEN [Concomitant]
  2. GLUCOSAMINE CHONDROITIN  (GLUCOSAMINE W/CHONDROITIN SULFATE) [Concomitant]
  3. MOBIC [Concomitant]
  4. IMIPRAMINE HCL [Concomitant]
  5. ASPIRIN [Concomitant]
  6. AUGMENTIN '125' [Concomitant]
  7. VELCADE [Concomitant]
  8. DEXAMETHASONE SODIUM PHOSPHATE [Concomitant]
  9. REVLIMID [Suspect]
     Indication: MULTIPLE MYELOMA
     Dosage: 15 MG, 15 X 21 DAYS, PO
     Route: 048
     Dates: start: 20110829, end: 20110926
  10. ANTIBIOTICS [Concomitant]
  11. MULTI-VITAMINS [Concomitant]

REACTIONS (1)
  - DIVERTICULAR PERFORATION [None]
